FAERS Safety Report 16462676 (Version 1)
Quarter: 2019Q2

REPORT INFORMATION
  Report Type: Spontaneous
  Country: IT (occurrence: IT)
  Receive Date: 20190621
  Receipt Date: 20190621
  Transmission Date: 20190711
  Serious: Yes (Other)
  Sender: FDA-Public Use
  Company Number: IT-AUROBINDO-AUR-APL-2019-036164

PATIENT

DRUGS (4)
  1. METOPROLOL FILM-COATED TABLET [Suspect]
     Active Substance: METOPROLOL
     Indication: HYPERTENSION
     Dosage: 100 MILLIGRAM, DAILY
     Route: 048
     Dates: start: 20180902
  2. CARDIOASPIRIN [Concomitant]
     Active Substance: ASPIRIN
     Indication: PRODUCT USED FOR UNKNOWN INDICATION
     Dosage: UNK
     Route: 065
  3. LOSARTAN FILM-COATED TABLETS [Suspect]
     Active Substance: LOSARTAN
     Indication: HYPERTENSION
     Dosage: 50 MILLIGRAM, DAILY
     Route: 048
     Dates: start: 20180902
  4. METFORMIN [Concomitant]
     Active Substance: METFORMIN HYDROCHLORIDE
     Indication: PRODUCT USED FOR UNKNOWN INDICATION
     Dosage: UNK
     Route: 065

REACTIONS (4)
  - Therapy non-responder [Recovering/Resolving]
  - Abdominal pain [Recovering/Resolving]
  - Dyspnoea [Recovering/Resolving]
  - Blood pressure increased [Recovering/Resolving]

NARRATIVE: CASE EVENT DATE: 20190205
